FAERS Safety Report 6240071-3 (Version None)
Quarter: 2009Q2

REPORT INFORMATION
  Report Type: 
  Country: None (occurrence: None)
  Receive Date: 20090619
  Receipt Date: 20090611
  Transmission Date: 20091009
  Serious: Yes (Death)
  Sender: FDA-Public Use
  Company Number: 20096910

PATIENT
  Age: 63 Year
  Sex: Male

DRUGS (1)
  1. LIORESAL [Suspect]
     Indication: MUSCLE SPASTICITY
     Dosage: 360.5 MCG, DAILY INTRATHECAL
     Route: 037

REACTIONS (2)
  - INFECTION [None]
  - SEPSIS [None]
